FAERS Safety Report 4883383-8 (Version None)
Quarter: 2006Q1

REPORT INFORMATION
  Report Type: 
  Country: None (occurrence: None)
  Receive Date: 20060113
  Receipt Date: 20051223
  Transmission Date: 20060701
  Serious: Yes (Other)
  Sender: FDA-Public Use
  Company Number: US200511002360

PATIENT
  Age: 87 Year
  Sex: Female
  Weight: 68.9 kg

DRUGS (4)
  1. FORTEO [Suspect]
     Indication: OSTEOPOROSIS
     Dosage: 20 UG, DAILY (1/D),
     Dates: start: 20051118, end: 20051118
  2. FORTEO [Concomitant]
  3. EVISTA [Concomitant]
  4. CALCIUM CARBONATE (CALCIUM CARBONATE) TABLET [Concomitant]

REACTIONS (7)
  - EMOTIONAL DISTRESS [None]
  - HYPOAESTHESIA [None]
  - INSOMNIA [None]
  - MEDICAL DEVICE COMPLICATION [None]
  - PHARMACEUTICAL PRODUCT COMPLAINT [None]
  - TACHYCARDIA [None]
  - THROAT TIGHTNESS [None]
